FAERS Safety Report 25095283 (Version 1)
Quarter: 2025Q1

REPORT INFORMATION
  Report Type: Spontaneous
  Country: US (occurrence: None)
  Receive Date: 20250317
  Receipt Date: 20250317
  Transmission Date: 20250409
  Serious: Yes (unspecified)
  Sender: FDA-CTU
  Company Number: None

PATIENT
  Age: 49 Year
  Sex: Male

DRUGS (1)
  1. TALTZ [Suspect]
     Active Substance: IXEKIZUMAB
     Indication: Psoriasis
     Dosage: FREQUENCY : MONTHLY;?
     Route: 058
     Dates: start: 20250217, end: 20250317

REACTIONS (6)
  - Oropharyngeal pain [None]
  - Throat tightness [None]
  - Stomatitis [None]
  - Blister [None]
  - Dry eye [None]
  - Impaired healing [None]

NARRATIVE: CASE EVENT DATE: 20250317
